FAERS Safety Report 6600242-0 (Version None)
Quarter: 2010Q1

REPORT INFORMATION
  Report Type: 
  Country: None (occurrence: None)
  Receive Date: 20100224
  Receipt Date: 20100216
  Transmission Date: 20100710
  Serious: Yes (Other)
  Sender: FDA-Public Use
  Company Number: US-PFIZER INC-2009168944

PATIENT
  Sex: Female
  Weight: 64 kg

DRUGS (7)
  1. LIPITOR [Suspect]
     Indication: DYSLIPIDAEMIA
     Dosage: 10 MG, 1X/DAY
     Route: 048
     Dates: start: 20030604
  2. LIPITOR [Suspect]
     Dosage: 40 MG, 1X/DAY
     Route: 048
     Dates: end: 20080210
  3. GLIPIZIDE [Concomitant]
     Dosage: 10 MG, 1X/DAY
  4. ENALAPRIL [Concomitant]
     Dosage: 20 MG, 1X/DAY
     Route: 048
  5. GLUCOPHAGE [Concomitant]
     Dosage: 850 MG, 2X/DAY
     Route: 048
  6. SOMA [Concomitant]
     Dosage: 350 MG, 1X/DAY
     Route: 048
  7. ELAVIL [Concomitant]
     Dosage: 25 MG, 1X/DAY
     Route: 048

REACTIONS (39)
  - ACUTE MYOCARDIAL INFARCTION [None]
  - ARRHYTHMIA [None]
  - ARTHRITIS [None]
  - BLOOD CALCIUM DECREASED [None]
  - BLOOD CHOLESTEROL INCREASED [None]
  - BLOOD PRESSURE INCREASED [None]
  - CARDIAC DISORDER [None]
  - CARDIAC FAILURE [None]
  - CELLULITIS [None]
  - CORONARY ARTERY DISEASE [None]
  - COSTOCHONDRITIS [None]
  - DIZZINESS POSTURAL [None]
  - EAR PAIN [None]
  - FIBROMYALGIA [None]
  - HEADACHE [None]
  - HYPOKALAEMIA [None]
  - ISCHAEMIC CARDIOMYOPATHY [None]
  - LOW DENSITY LIPOPROTEIN INCREASED [None]
  - LUMBAR SPINAL STENOSIS [None]
  - LUNG INFILTRATION [None]
  - LYMPHADENOPATHY [None]
  - MUSCLE INJURY [None]
  - MUSCLE STRAIN [None]
  - MYOSITIS [None]
  - NO THERAPEUTIC RESPONSE [None]
  - OEDEMA PERIPHERAL [None]
  - PANCREATITIS ACUTE [None]
  - PLEURAL EFFUSION [None]
  - PNEUMONIA [None]
  - PNEUMOTHORAX [None]
  - RADICULOPATHY [None]
  - SINUS BRADYCARDIA [None]
  - SKIN DISCOLOURATION [None]
  - SPINAL OSTEOARTHRITIS [None]
  - SWELLING [None]
  - VENTRICULAR FIBRILLATION [None]
  - VENTRICULAR TACHYCARDIA [None]
  - VIRAL INFECTION [None]
  - WEIGHT DECREASED [None]
